FAERS Safety Report 10247570 (Version 1)
Quarter: 2014Q2

REPORT INFORMATION
  Report Type: Report from Study
  Country: GB (occurrence: GB)
  Receive Date: 20140619
  Receipt Date: 20140619
  Transmission Date: 20141212
  Serious: Yes (Hospitalization)
  Sender: FDA-Public Use
  Company Number: GB-JNJFOC-20140607893

PATIENT
  Age: 69 Year
  Sex: Male
  Weight: 132 kg

DRUGS (13)
  1. USTEKINUMAB [Suspect]
     Indication: PSORIASIS
     Route: 058
     Dates: start: 20130625, end: 20140507
  2. DOXAZOSIN [Concomitant]
     Route: 065
     Dates: start: 20100615
  3. DIGOXIN [Concomitant]
     Route: 065
     Dates: start: 20080616
  4. CETRIZINE [Concomitant]
     Route: 065
     Dates: start: 20100615
  5. DILTIAZEM [Concomitant]
     Route: 065
     Dates: start: 20080615
  6. LANSOPRAZOLE [Concomitant]
     Route: 065
     Dates: start: 20070615
  7. ASPIRIN [Concomitant]
     Route: 065
     Dates: start: 20080615
  8. ALLOPURINOL [Concomitant]
     Route: 065
     Dates: start: 20020815
  9. HYDROXYZINE [Concomitant]
     Route: 065
     Dates: start: 20080615
  10. METFORMIN [Concomitant]
     Route: 065
     Dates: start: 19930415
  11. ENOXAPARIN SODIUM [Concomitant]
     Route: 065
     Dates: start: 20140502
  12. RIVAROXABAN [Concomitant]
     Route: 048
     Dates: start: 20140124
  13. CICLOSPORIN [Concomitant]
     Route: 065
     Dates: start: 20120815

REACTIONS (2)
  - Cellulitis [Recovered/Resolved]
  - Eczema [Recovered/Resolved]
